FAERS Safety Report 15474196 (Version 2)
Quarter: 2019Q1

REPORT INFORMATION
  Report Type: Spontaneous
  Country: US (occurrence: US)
  Receive Date: 20181008
  Receipt Date: 20190122
  Transmission Date: 20190417
  Serious: No
  Sender: FDA-Public Use
  Company Number: US-SA-2018SA276714

PATIENT
  Age: 76 Year
  Sex: Male

DRUGS (3)
  1. JANUVIA [Suspect]
     Active Substance: SITAGLIPTIN PHOSPHATE
     Indication: DIABETES MELLITUS
     Dosage: UNKNOWN
     Route: 065
  2. LANTUS SOLOSTAR [Suspect]
     Active Substance: INSULIN GLARGINE
     Dosage: PHYSICIAN HAS PRESCRIBED HIM 20 UNITS IN THE MORNING AND 10 UNITS AT NIGHT
     Route: 065
  3. LANTUS SOLOSTAR [Suspect]
     Active Substance: INSULIN GLARGINE
     Indication: TYPE 2 DIABETES MELLITUS
     Dosage: 13 U, QD
     Route: 065

REACTIONS (4)
  - Blood glucose increased [Unknown]
  - Feeling abnormal [Unknown]
  - Chest pain [Unknown]
  - Off label use [Unknown]
